FAERS Safety Report 8257117 (Version 3)
Quarter: 2012Q4

REPORT INFORMATION
  Report Type: Spontaneous
  Country: NL (occurrence: None)
  Receive Date: 20111114
  Receipt Date: 20121029
  Transmission Date: 20130627
  Serious: Yes (Other)
  Sender: FDA-Public Use
  Company Number: 2011MPI00275

PATIENT
  Age: 26 Year
  Sex: Female

DRUGS (2)
  1. BRENTUXIMAB VEDOTIN [Suspect]
     Indication: HODGKIN^S LYMPHOMA
     Dosage: 1.8 MG/KG, QCYCLE, INTRAVENOUS
     Route: 042
     Dates: start: 20110712, end: 20110712
  2. FENTANYL [Concomitant]

REACTIONS (14)
  - Liver function test abnormal [None]
  - Decreased appetite [None]
  - Malaise [None]
  - Alopecia [None]
  - Hypersensitivity [None]
  - Nausea [None]
  - Vomiting [None]
  - Hodgkin^s disease [None]
  - Polyneuropathy [None]
  - Neoplasm progression [None]
  - Alanine aminotransferase increased [None]
  - Aspartate aminotransferase increased [None]
  - Blood alkaline phosphatase increased [None]
  - Gamma-glutamyltransferase increased [None]
